FAERS Safety Report 4600720-X (Version None)
Quarter: 2005Q1

REPORT INFORMATION
  Report Type: 
  Country: None (occurrence: None)
  Receive Date: 20050303
  Receipt Date: 20050217
  Transmission Date: 20050727
  Serious: Yes (Other)
  Sender: FDA-Public Use
  Company Number: 601905

PATIENT
  Age: 53 Year
  Sex: Male

DRUGS (2)
  1. PROPLEX [Suspect]
     Indication: FACTOR IX DEFICIENCY
     Dosage: INTRAVENOUS
     Route: 042
     Dates: start: 19780101, end: 19810101
  2. KONYNE [Suspect]
     Indication: FACTOR IX DEFICIENCY
     Dates: start: 19810101, end: 19900101

REACTIONS (1)
  - HEPATITIS C VIRUS [None]
